FAERS Safety Report 9824438 (Version 3)
Quarter: 2015Q3

REPORT INFORMATION
  Report Type: Spontaneous
  Country: US (occurrence: US)
  Receive Date: 20140116
  Receipt Date: 20150810
  Transmission Date: 20151125
  Serious: No
  Sender: FDA-Public Use
  Company Number: US-GILEAD-2011-0039830

PATIENT
  Age: 79 Year
  Sex: Male

DRUGS (8)
  1. TRIAMTERENE-HCTZ [Concomitant]
     Active Substance: HYDROCHLOROTHIAZIDE\TRIAMTERENE
  2. WARFARIN [Concomitant]
     Active Substance: WARFARIN
  3. ADVAIR HFA [Concomitant]
     Active Substance: FLUTICASONE PROPIONATE\SALMETEROL XINAFOATE
  4. ALLOPURINOL. [Concomitant]
     Active Substance: ALLOPURINOL
  5. TAMSULOSIN [Concomitant]
     Active Substance: TAMSULOSIN
  6. LETAIRIS [Suspect]
     Active Substance: AMBRISENTAN
     Indication: PULMONARY HYPERTENSION
     Route: 048
     Dates: start: 20110519, end: 20110522
  7. ATENOLOL. [Concomitant]
     Active Substance: ATENOLOL
  8. SPIRIVA [Concomitant]
     Active Substance: TIOTROPIUM BROMIDE MONOHYDRATE

REACTIONS (7)
  - Nasal congestion [Unknown]
  - Palpitations [Unknown]
  - Blood potassium decreased [Unknown]
  - Abdominal pain [Unknown]
  - Pruritus [Unknown]
  - Peripheral swelling [Unknown]
  - Urinary tract infection [Unknown]
